FAERS Safety Report 6667030-0 (Version None)
Quarter: 2010Q2

REPORT INFORMATION
  Report Type: 
  Country: None (occurrence: None)
  Receive Date: 20100402
  Receipt Date: 20100402
  Transmission Date: 20101027
  Serious: Yes (Hospitalization)
  Sender: FDA-Public Use
  Company Number: None

PATIENT
  Sex: Male
  Weight: 86.1834 kg

DRUGS (1)
  1. CITALOPRAM HYDROBROMIDE [Suspect]
     Dosage: 1 TABLET DAY PO
     Route: 048

REACTIONS (3)
  - DYSGEUSIA [None]
  - DYSPNOEA [None]
  - VISUAL IMPAIRMENT [None]
